FAERS Safety Report 14486609 (Version 1)
Quarter: 2018Q1

REPORT INFORMATION
  Report Type: Spontaneous
  Country: US (occurrence: US)
  Receive Date: 20180204
  Receipt Date: 20180204
  Transmission Date: 20180509
  Serious: Yes (Other)
  Sender: FDA-Public Use
  Company Number: None

PATIENT
  Age: 1 Year
  Sex: Male
  Weight: 13.5 kg

DRUGS (1)
  1. TAMIFLU [Suspect]
     Active Substance: OSELTAMIVIR PHOSPHATE
     Indication: INFLUENZA
     Dosage: ?          QUANTITY:60 TEASPOON(S);?
     Route: 048
     Dates: start: 20180122, end: 20180127

REACTIONS (3)
  - Screaming [None]
  - Abnormal behaviour [None]
  - Sleep terror [None]

NARRATIVE: CASE EVENT DATE: 20180122
